FAERS Safety Report 16371170 (Version 1)
Quarter: 2019Q2

REPORT INFORMATION
  Report Type: Spontaneous
  Country: IT (occurrence: IT)
  Receive Date: 20190530
  Receipt Date: 20190530
  Transmission Date: 20190711
  Serious: Yes (Hospitalization)
  Sender: FDA-Public Use
  Company Number: IT-TEVA-2019-IT-1055888

PATIENT
  Age: 70 Year
  Sex: Male

DRUGS (2)
  1. CARBOPLATIN. [Suspect]
     Active Substance: CARBOPLATIN
     Indication: LUNG NEOPLASM MALIGNANT
     Dosage: 230 MILLIGRAM
     Route: 042
     Dates: start: 20190402, end: 20190409
  2. GEMCITABINE [Suspect]
     Active Substance: GEMCITABINE\GEMCITABINE HYDROCHLORIDE
     Indication: LUNG NEOPLASM MALIGNANT
     Dosage: 1500 MILLIGRAM
     Route: 042
     Dates: start: 20190402, end: 20190409

REACTIONS (3)
  - Atrial fibrillation [Not Recovered/Not Resolved]
  - Ventricular fibrillation [Not Recovered/Not Resolved]
  - Pulmonary oedema [Not Recovered/Not Resolved]

NARRATIVE: CASE EVENT DATE: 20190409
